FAERS Safety Report 5602187-1 (Version None)
Quarter: 2008Q1

REPORT INFORMATION
  Report Type: 
  Country: None (occurrence: None)
  Receive Date: 20080125
  Receipt Date: 20080115
  Transmission Date: 20080703
  Serious: Yes (Other)
  Sender: FDA-Public Use
  Company Number: US-ASTRAZENECA-2006UW08136

PATIENT
  Age: 38 Year
  Sex: Male
  Weight: 104.5 kg

DRUGS (3)
  1. SEROQUEL [Suspect]
     Indication: DEPRESSION
     Route: 048
     Dates: start: 20030401, end: 20050614
  2. ZYPREXA [Concomitant]
     Dates: start: 19970101, end: 20050101
  3. XANAX [Concomitant]
     Dates: start: 19970101, end: 20060101

REACTIONS (7)
  - BLOOD CHOLESTEROL INCREASED [None]
  - DIABETES MELLITUS [None]
  - DRUG INEFFECTIVE [None]
  - NAUSEA [None]
  - NEOPLASM MALIGNANT [None]
  - OBESITY [None]
  - RECTAL CANCER [None]
